FAERS Safety Report 20400739 (Version 2)
Quarter: 2022Q1

REPORT INFORMATION
  Report Type: Spontaneous
  Country: US (occurrence: US)
  Receive Date: 20220131
  Receipt Date: 20220201
  Transmission Date: 20220424
  Serious: No
  Sender: FDA-Public Use
  Company Number: US-ABBVIE-21K-163-3934090-00

PATIENT
  Age: 47 Year
  Sex: Female
  Weight: 84.898 kg

DRUGS (5)
  1. HUMIRA [Suspect]
     Active Substance: ADALIMUMAB
     Indication: Crohn^s disease
     Route: 058
     Dates: start: 202101, end: 202105
  2. HUMIRA [Suspect]
     Active Substance: ADALIMUMAB
     Indication: Rheumatoid arthritis
  3. COVID-19 VACCINE [Concomitant]
     Indication: COVID-19 immunisation
     Dosage: MANUFACTURER: MODERNA
     Route: 030
     Dates: start: 20210304, end: 20210304
  4. COVID-19 VACCINE [Concomitant]
     Dosage: MANUFACTURER: MODERNA
     Route: 030
     Dates: start: 20210329, end: 20210329
  5. ZYRTEC [Concomitant]
     Active Substance: CETIRIZINE HYDROCHLORIDE
     Indication: Seasonal allergy

REACTIONS (13)
  - Somnolence [Not Recovered/Not Resolved]
  - General physical health deterioration [Not Recovered/Not Resolved]
  - Mobility decreased [Not Recovered/Not Resolved]
  - Diarrhoea [Recovered/Resolved]
  - Wrong technique in product usage process [Recovered/Resolved]
  - Seasonal allergy [Not Recovered/Not Resolved]
  - Vomiting [Unknown]
  - Intentional dose omission [Unknown]
  - Diarrhoea [Not Recovered/Not Resolved]
  - Liquid product physical issue [Recovered/Resolved]
  - Headache [Not Recovered/Not Resolved]
  - Arthralgia [Not Recovered/Not Resolved]
  - Joint swelling [Not Recovered/Not Resolved]

NARRATIVE: CASE EVENT DATE: 20210101
